FAERS Safety Report 7654217-3 (Version None)
Quarter: 2011Q3

REPORT INFORMATION
  Report Type: 
  Country: None (occurrence: None)
  Receive Date: 20110803
  Receipt Date: 20110728
  Transmission Date: 20111222
  Serious: Yes (Death)
  Sender: FDA-Public Use
  Company Number: JP-GENZYME-THYM-1001963

PATIENT
  Sex: Male
  Weight: 47 kg

DRUGS (15)
  1. RED BLOOD CELLS, CONCENTRATED [Concomitant]
     Indication: APLASTIC ANAEMIA
     Dosage: UNK
     Dates: start: 20100805, end: 20100920
  2. PLATELETS [Concomitant]
     Indication: APLASTIC ANAEMIA
     Dosage: UNK
     Dates: start: 20100805, end: 20100920
  3. THYMOGLOBULIN [Suspect]
     Indication: APLASTIC ANAEMIA
     Dosage: 180 MG, QD
     Route: 042
     Dates: start: 20100901, end: 20100905
  4. OMEPRAZOLE [Concomitant]
     Indication: PROPHYLAXIS AGAINST GASTROINTESTINAL ULCER
     Dosage: UNK
     Dates: start: 20100806, end: 20100920
  5. VALACYCLOVIR HYDROCHLORIDE [Concomitant]
     Indication: ANTIVIRAL PROPHYLAXIS
     Dosage: UNK
     Dates: start: 20100831, end: 20100917
  6. CARBAZOCHROME SODIUM SULFONATE [Concomitant]
     Indication: CEREBRAL HAEMORRHAGE
     Dosage: UNK
     Dates: start: 20100807, end: 20100917
  7. TEICOPLANIN [Concomitant]
     Indication: SEPSIS
     Dosage: UNK
     Dates: start: 20100830, end: 20100907
  8. MAGNESIUM OXIDE [Concomitant]
     Indication: CONSTIPATION
     Dosage: UNK
     Dates: start: 20100830, end: 20100917
  9. VORICONAZOLE [Concomitant]
     Indication: ANTIFUNGAL PROPHYLAXIS
     Dosage: UNK
     Dates: start: 20100827, end: 20100917
  10. FILGRASTIM [Concomitant]
     Indication: APLASTIC ANAEMIA
     Dosage: UNK
     Dates: start: 20100806, end: 20100920
  11. METHYLPREDNISOLONE SODIUM SUCCINATE [Concomitant]
     Indication: PREMEDICATION
     Dosage: UNK
     Dates: start: 20100901, end: 20100911
  12. CHLORPHENIRAMINE MALEATE [Concomitant]
     Indication: PREMEDICATION
     Dosage: UNK
     Dates: start: 20100901, end: 20100905
  13. CYCLOSPORINE [Concomitant]
     Indication: APLASTIC ANAEMIA
     Dosage: UNK
     Dates: start: 20100901, end: 20100920
  14. DORIPENEM HYDRATE [Concomitant]
     Indication: SEPSIS
     Dosage: UNK
     Dates: start: 20100827, end: 20100915
  15. PREDNISOLONE [Concomitant]
     Indication: PREMEDICATION
     Dosage: UNK
     Dates: start: 20100912, end: 20100920

REACTIONS (2)
  - APLASTIC ANAEMIA [None]
  - KLEBSIELLA SEPSIS [None]
